FAERS Safety Report 13743630 (Version 1)
Quarter: 2017Q3

REPORT INFORMATION
  Report Type: Spontaneous
  Country: US (occurrence: US)
  Receive Date: 20170711
  Receipt Date: 20170711
  Transmission Date: 20171127
  Serious: No
  Sender: FDA-Public Use
  Company Number: US-009507513-1706USA007597

PATIENT
  Age: 19 Year
  Sex: Female
  Weight: 63.49 kg

DRUGS (1)
  1. NEXPLANON [Suspect]
     Active Substance: ETONOGESTREL
     Indication: CONTRACEPTION
     Dosage: 1 IMPLANT, EVERY 3 YEARS IN THE LEFT ARM
     Route: 059
     Dates: start: 20160923

REACTIONS (11)
  - Amenorrhoea [Recovered/Resolved]
  - Implant site pain [Recovered/Resolved]
  - Menorrhagia [Unknown]
  - Implant site mass [Unknown]
  - Menorrhagia [Not Recovered/Not Resolved]
  - Vaginal haemorrhage [Unknown]
  - Abdominal pain lower [Unknown]
  - Weight increased [Unknown]
  - Mood swings [Unknown]
  - Menstruation irregular [Unknown]
  - Implant site bruising [Recovered/Resolved]

NARRATIVE: CASE EVENT DATE: 20160923
